FAERS Safety Report 8619332-6 (Version None)
Quarter: 2012Q3

REPORT INFORMATION
  Report Type: 
  Country: None (occurrence: None)
  Receive Date: 20120824
  Receipt Date: 20120819
  Transmission Date: 20120928
  Serious: Yes (Hospitalization, Other)
  Sender: FDA-Public Use
  Company Number: CA-PFIZER INC-2012203329

PATIENT
  Age: 30 Year
  Sex: Female
  Weight: 70.8 kg

DRUGS (4)
  1. PULMICORT [Concomitant]
     Dosage: 200 UG, 2X/DAY
     Dates: start: 20110415
  2. VENTOLIN [Concomitant]
     Dosage: UNK, AS NEEDED
     Route: 055
     Dates: start: 20110415
  3. CHANTIX [Suspect]
     Indication: SMOKING CESSATION THERAPY
     Dosage: 1 MG, 2X/DAY
     Route: 048
     Dates: start: 20110809, end: 20111109
  4. YASMIN [Concomitant]
     Dosage: UNK
     Dates: start: 20110913

REACTIONS (5)
  - IMPULSIVE BEHAVIOUR [None]
  - SINUS TACHYCARDIA [None]
  - DEPRESSION [None]
  - SUBSTANCE ABUSE [None]
  - OVERDOSE [None]
